FAERS Safety Report 8159273-4 (Version None)
Quarter: 2012Q1

REPORT INFORMATION
  Report Type: 
  Country: None (occurrence: None)
  Receive Date: 20120217
  Receipt Date: 20120207
  Transmission Date: 20120608
  Serious: Yes (Hospitalization)
  Sender: FDA-Public Use
  Company Number: US-2012-10032

PATIENT
  Age: 49 Year
  Sex: Male

DRUGS (5)
  1. RAMIPRIL [Concomitant]
  2. FOLIC ACID [Concomitant]
  3. MARCUMAR [Concomitant]
  4. OPC-41061 (TOLVAPTAN) TABLET, 15MG MILLIGRAM(S) [Suspect]
     Indication: CONGENITAL CYSTIC KIDNEY DISEASE
     Dosage: 45/15 MG MILLIGRAM(S), DAILY DOSE, ORAL
     Route: 048
     Dates: start: 20110301, end: 20120123
  5. ALLOPURINOL [Concomitant]

REACTIONS (8)
  - BLOOD CREATININE INCREASED [None]
  - PLATELET COUNT DECREASED [None]
  - QRS AXIS ABNORMAL [None]
  - VENTRICULAR EXTRASYSTOLES [None]
  - CEREBROVASCULAR ACCIDENT [None]
  - THROMBOSIS [None]
  - ELECTROCARDIOGRAM Q WAVES [None]
  - BLOOD UREA INCREASED [None]
